FAERS Safety Report 8355009-2 (Version None)
Quarter: 2012Q2

REPORT INFORMATION
  Report Type: 
  Country: None (occurrence: None)
  Receive Date: 20120511
  Receipt Date: 20120504
  Transmission Date: 20120825
  Serious: Yes (Hospitalization)
  Sender: FDA-Public Use
  Company Number: US-VERTEX PHARMACEUTICALS INC.-AE-2012-006492

PATIENT
  Sex: Female

DRUGS (4)
  1. INCIVEK [Suspect]
     Indication: HEPATITIS C
     Route: 048
  2. DIURETIC [Concomitant]
  3. RIBAVIRIN [Concomitant]
     Indication: HEPATITIS C
  4. PEGASYS [Concomitant]
     Indication: HEPATITIS C

REACTIONS (1)
  - RENAL TUBULAR ACIDOSIS [None]
